FAERS Safety Report 17237231 (Version 1)
Quarter: 2019Q4

REPORT INFORMATION
  Report Type: Spontaneous
  Country: US (occurrence: US)
  Receive Date: 20191211
  Receipt Date: 20191211
  Transmission Date: 20200122
  Serious: No
  Sender: FDA-Public Use
  Company Number: None

PATIENT
  Sex: Female

DRUGS (2)
  1. ARMOUR THYROID [Suspect]
     Active Substance: THYROID, PORCINE
  2. MONTELUKAST [Suspect]
     Active Substance: MONTELUKAST SODIUM

REACTIONS (1)
  - Drug dispensed to wrong patient [None]
